FAERS Safety Report 9699054 (Version 1)
Quarter: 2013Q4

REPORT INFORMATION
  Report Type: Spontaneous
  Country: IT (occurrence: IT)
  Receive Date: 20131120
  Receipt Date: 20131120
  Transmission Date: 20140711
  Serious: Yes (Hospitalization, Other)
  Sender: FDA-Public Use
  Company Number: IT-ACTAVIS-2013-20962

PATIENT
  Sex: Male

DRUGS (9)
  1. IRINOTECAN (UNKNOWN) [Suspect]
     Indication: ADENOCARCINOMA OF COLON
     Dosage: UNK
     Route: 064
  2. IRINOTECAN (UNKNOWN) [Suspect]
     Indication: METASTASES TO LIVER
  3. IRINOTECAN (UNKNOWN) [Suspect]
     Indication: METASTASES TO LYMPH NODES
  4. FLUOROURACIL [Suspect]
     Indication: ADENOCARCINOMA OF COLON
     Dosage: UNK
     Route: 064
  5. FLUOROURACIL [Suspect]
     Indication: METASTASES TO LIVER
  6. FLUOROURACIL [Suspect]
     Indication: METASTASES TO LYMPH NODES
  7. LEUCOVORIN /00566701/ [Suspect]
     Indication: ADENOCARCINOMA OF COLON
     Dosage: UNK
     Route: 064
  8. LEUCOVORIN /00566701/ [Suspect]
     Indication: METASTASES TO LIVER
  9. LEUCOVORIN /00566701/ [Suspect]
     Indication: METASTASES TO LYMPH NODES

REACTIONS (2)
  - Foetal growth restriction [Recovered/Resolved]
  - Foetal exposure during pregnancy [Recovered/Resolved]
